FAERS Safety Report 24256597 (Version 4)
Quarter: 2025Q1

REPORT INFORMATION
  Report Type: Spontaneous
  Country: US (occurrence: US)
  Receive Date: 20240828
  Receipt Date: 20250220
  Transmission Date: 20250408
  Serious: Yes (Hospitalization, Other)
  Sender: SPECGX
  Company Number: US-SPECGX-T202401453

PATIENT
  Age: 45 Year
  Sex: Male
  Weight: 113 kg

DRUGS (4)
  1. METHADONE [Suspect]
     Active Substance: METHADONE HYDROCHLORIDE
     Indication: Substance use disorder
     Dosage: 7 DOSAGE FORM (3 PILLS IN THE MORNING, 3 PILLS IN THE NIGHT AND 1 PILL BEFORE BED)
     Route: 048
     Dates: start: 202311
  2. METHADONE [Suspect]
     Active Substance: METHADONE HYDROCHLORIDE
     Indication: Pain
     Dosage: 7 DOSAGE FORM (3 PILLS IN THE MORNING, 3 PILLS IN THE NIGHT AND 1 PILL BEFORE BED)
     Route: 048
  3. METHADONE [Suspect]
     Active Substance: METHADONE HYDROCHLORIDE
     Indication: Drug use disorder
     Dosage: 7 DOSAGE FORM (3 PILLS IN THE MORNING, 3 PILLS IN THE NIGHT AND 1 PILL BEFORE BED)
     Route: 048
     Dates: start: 20250211
  4. CANNABIS SATIVA SUBSP. INDICA TOP [Suspect]
     Active Substance: CANNABIS SATIVA SUBSP. INDICA TOP
     Indication: Product used for unknown indication
     Route: 065

REACTIONS (22)
  - Suicidal ideation [Not Recovered/Not Resolved]
  - Suicide attempt [Unknown]
  - Blood creatine phosphokinase increased [Recovered/Resolved]
  - Road traffic accident [Unknown]
  - Blood testosterone decreased [Unknown]
  - Substance use [Unknown]
  - Nasopharyngitis [Unknown]
  - Chills [Not Recovered/Not Resolved]
  - Feeling abnormal [Not Recovered/Not Resolved]
  - Illness [Not Recovered/Not Resolved]
  - Pyrexia [Not Recovered/Not Resolved]
  - Lethargy [Unknown]
  - Fatigue [Unknown]
  - Asthenia [Unknown]
  - Somnolence [Unknown]
  - Hyperhidrosis [Not Recovered/Not Resolved]
  - Drug withdrawal syndrome [Unknown]
  - Theft [Unknown]
  - Product taste abnormal [Unknown]
  - Suspected product tampering [Unknown]
  - Product quality issue [Unknown]
  - Drug effect less than expected [Unknown]

NARRATIVE: CASE EVENT DATE: 20231101
